FAERS Safety Report 16619496 (Version 4)
Quarter: 2020Q3

REPORT INFORMATION
  Report Type: Spontaneous
  Country: US (occurrence: US)
  Receive Date: 20190723
  Receipt Date: 20200923
  Transmission Date: 20201102
  Serious: Yes (Other)
  Sender: FDA-Public Use
  Company Number: US-INCYTE CORPORATION-2019IN007218

PATIENT

DRUGS (2)
  1. JAKAFI [Suspect]
     Active Substance: RUXOLITINIB
     Indication: POLYCYTHAEMIA VERA
     Dosage: 10 MILLIGRAM, BID
     Route: 048
     Dates: start: 201708
  2. JAKAFI [Suspect]
     Active Substance: RUXOLITINIB
     Dosage: 10 MILLIGRAM, BID
     Route: 048

REACTIONS (15)
  - Thrombocytosis [Unknown]
  - Chronic kidney disease [Unknown]
  - Hiatus hernia [Unknown]
  - Aquagenic pruritus [Recovered/Resolved]
  - Macrocytosis [Unknown]
  - Anaemia [Unknown]
  - Gastric ulcer [Unknown]
  - Reticulocytosis [Unknown]
  - Gastritis [Unknown]
  - Fatigue [Unknown]
  - Iron deficiency anaemia [Recovered/Resolved]
  - Mean cell volume abnormal [Unknown]
  - Gastrooesophageal reflux disease [Unknown]
  - Haemoglobin decreased [Recovering/Resolving]
  - Abdominal pain upper [Not Recovered/Not Resolved]

NARRATIVE: CASE EVENT DATE: 20190301
